FAERS Safety Report 6971126-3 (Version None)
Quarter: 2010Q3

REPORT INFORMATION
  Report Type: 
  Country: None (occurrence: None)
  Receive Date: 20100908
  Receipt Date: 20100902
  Transmission Date: 20110219
  Serious: No
  Sender: FDA-Public Use
  Company Number: JP-US-EMD SERONO, INC.-7014442

PATIENT
  Age: 15 Year
  Sex: Male

DRUGS (2)
  1. GONAL-F [Suspect]
     Indication: SECONDARY HYPOGONADISM
     Route: 058
     Dates: start: 20100601
  2. HUMAN CHORIONIC GONADOTROPHIN [Suspect]
     Indication: SECONDARY HYPOGONADISM
     Route: 058
     Dates: start: 20100601

REACTIONS (3)
  - DECREASED APPETITE [None]
  - OFF LABEL USE [None]
  - WEIGHT DECREASED [None]
